FAERS Safety Report 14714922 (Version 1)
Quarter: 2018Q2

REPORT INFORMATION
  Report Type: Spontaneous
  Country: FR (occurrence: FR)
  Receive Date: 20180404
  Receipt Date: 20180404
  Transmission Date: 20180711
  Serious: Yes (Hospitalization)
  Sender: FDA-Public Use
  Company Number: FR-TEVA-2018-FR-875951

PATIENT
  Age: 79 Year
  Sex: Male
  Weight: 90 kg

DRUGS (20)
  1. NEUPOGEN 30 MU (0,3 MG/ ML), SOLUTION INJECTABLE EN FLACON [Concomitant]
     Route: 058
  2. SIMVASTATINE [Concomitant]
     Active Substance: SIMVASTATIN
     Indication: DYSLIPIDAEMIA
     Route: 048
  3. INEXIUM 40 MG, GASTRO-RESISTANT TABLET [Interacting]
     Active Substance: ESOMEPRAZOLE MAGNESIUM
     Indication: PROPHYLAXIS
     Route: 048
  4. VINCRISTINE (SULFATE DE) [Concomitant]
     Active Substance: VINCRISTINE SULFATE
     Indication: LYMPHOMA
     Route: 042
  5. METHOTREXATE. [Suspect]
     Active Substance: METHOTREXATE
     Indication: LYMPHOMA
     Route: 042
  6. BACTRIM [Interacting]
     Active Substance: SULFAMETHOXAZOLE\TRIMETHOPRIM
     Indication: PROPHYLAXIS
     Route: 048
  7. LEDERFOLINE 25 MG, COMPRIM? [Concomitant]
     Route: 048
  8. ZOPHREN 8 MG, COMPRIM? PELLICUL? [Concomitant]
     Route: 048
  9. ZELITREX 500 MG, COMPRIM? ENROB? [Concomitant]
     Active Substance: VALACYCLOVIR HYDROCHLORIDE
     Indication: PROPHYLAXIS
     Route: 048
  10. TOPALGIC 50 MG, G?LULE [Concomitant]
     Indication: PAIN
     Route: 048
  11. RITUXIMAB ((MAMMIFERE/HAMSTER/CELLULES CHO)) [Concomitant]
     Active Substance: RITUXIMAB
     Indication: LYMPHOMA
     Route: 042
  12. INNOHEP [Concomitant]
     Active Substance: TINZAPARIN SODIUM
     Route: 058
  13. TRIATEC 5 MG, COMPRIM? SECABLE [Concomitant]
     Indication: HYPERTENSION
     Route: 048
  14. XATRAL LP 10 MG, COMPRIM? ? LIB?RATION PROLONG?E [Concomitant]
     Indication: BENIGN PROSTATIC HYPERPLASIA
     Route: 048
  15. AMLOR 5 MG, G?LULE [Concomitant]
     Indication: HYPERTENSION
     Route: 048
  16. METHYLPREDNISOLONE. [Concomitant]
     Active Substance: METHYLPREDNISOLONE
     Indication: LYMPHOMA
     Route: 042
  17. PRIMPERAN 10 MG, COMPRIM? S?CABLE [Concomitant]
     Route: 048
  18. PROCARBAZINE [Concomitant]
     Active Substance: PROCARBAZINE
     Indication: LYMPHOMA
     Route: 048
  19. CORTANCYL 20 MG, COMPRIM? [Concomitant]
     Indication: PAIN
     Route: 048
  20. KEPPRA [Concomitant]
     Active Substance: LEVETIRACETAM
     Route: 048

REACTIONS (3)
  - Drug interaction [Recovering/Resolving]
  - Acute kidney injury [Recovering/Resolving]
  - Drug level increased [Recovering/Resolving]
